FAERS Safety Report 8915067 (Version 2)
Quarter: 2012Q4

REPORT INFORMATION
  Report Type: 
  Country: IT (occurrence: IT)
  Receive Date: 20121119
  Receipt Date: 20121126
  Transmission Date: 20130627
  Serious: Yes (Death)
  Sender: FDA-Public Use
  Company Number: IT-ASTRAZENECA-2012SE86625

PATIENT
  Age: 66 Year
  Sex: Female

DRUGS (4)
  1. CANDESARTAN CILEXETIL [Suspect]
     Indication: HYPERTENSION
     Route: 048
  2. CARDIOASPIRINA [Concomitant]
  3. INSULIN [Concomitant]
     Indication: DIABETES MELLITUS
  4. BETA-BLOCKER(NOS) [Concomitant]
     Indication: HYPERTENSION

REACTIONS (3)
  - Infarction [Fatal]
  - Cerebrovascular accident [Fatal]
  - Deep vein thrombosis [Fatal]
